FAERS Safety Report 10413584 (Version 1)
Quarter: 2014Q3

REPORT INFORMATION
  Report Type: Spontaneous
  Country: US (occurrence: US)
  Receive Date: 20140827
  Receipt Date: 20140827
  Transmission Date: 20150326
  Serious: Yes (Other)
  Sender: FDA-Public Use
  Company Number: US-PFIZER INC-2014236292

PATIENT
  Sex: Female

DRUGS (2)
  1. ZYVOX [Suspect]
     Active Substance: LINEZOLID
     Dosage: UNK
  2. VANCO [Suspect]
     Active Substance: VANCOMYCIN
     Dosage: UNK

REACTIONS (1)
  - Lactic acidosis [Recovered/Resolved]
